FAERS Safety Report 9223124 (Version 1)
Quarter: 2013Q1

REPORT INFORMATION
  Report Type: Spontaneous
  Country: US (occurrence: None)
  Receive Date: 20120914
  Receipt Date: 20120914
  Transmission Date: 20140127
  Serious: Yes (Other)
  Sender: FDA-Public Use
  Company Number: JPI-P-017509

PATIENT
  Age: 34 Year
  Sex: Female
  Weight: 96.16 kg

DRUGS (5)
  1. XYREM (500 MILLIGRAM/MILLILITERS, SOLUTION) (SODIUM OXYBATE) [Suspect]
     Indication: CATAPLEXY
     Route: 048
     Dates: start: 20110929, end: 2011
  2. LISINOPRIL [Concomitant]
  3. UNSPECIFIED MEDICATIONS [Concomitant]
  4. METHYLPHENIDATE HYDROCHLORIDE [Concomitant]
  5. ARMODAFINIL [Concomitant]

REACTIONS (14)
  - Blood pressure increased [None]
  - Condition aggravated [None]
  - Uterine enlargement [None]
  - Uterine spasm [None]
  - Cardiac murmur [None]
  - Abdominal pain [None]
  - Insomnia [None]
  - Dizziness [None]
  - Nausea [None]
  - Vomiting [None]
  - Oedema peripheral [None]
  - Hypoaesthesia [None]
  - Fatigue [None]
  - Agitation [None]
